FAERS Safety Report 8370382-7 (Version None)
Quarter: 2012Q2

REPORT INFORMATION
  Report Type: 
  Country: None (occurrence: None)
  Receive Date: 20120518
  Receipt Date: 20120507
  Transmission Date: 20120825
  Serious: Yes (Hospitalization)
  Sender: FDA-Public Use
  Company Number: US-JNJFOC-20120507537

PATIENT
  Sex: Female

DRUGS (2)
  1. REMICADE [Suspect]
     Indication: PSORIATIC ARTHROPATHY
     Route: 042
     Dates: start: 20110802, end: 20110802
  2. REMICADE [Suspect]
     Route: 042

REACTIONS (4)
  - COSTOCHONDRITIS [None]
  - PNEUMONIA [None]
  - LUNG NEOPLASM [None]
  - INTERSTITIAL LUNG DISEASE [None]
